FAERS Safety Report 7538694-4 (Version None)
Quarter: 2011Q2

REPORT INFORMATION
  Report Type: 
  Country: None (occurrence: None)
  Receive Date: 20110610
  Receipt Date: 20110603
  Transmission Date: 20111010
  Serious: Yes (Life-Threatening)
  Sender: FDA-Public Use
  Company Number: US-SHIRE-ALL1-2010-00907

PATIENT

DRUGS (7)
  1. INTUNIV [Suspect]
     Indication: ANXIETY
     Dosage: 2 MG, 1X/DAY:QD(INTUNIV TAKEN NIGHTLY)
     Route: 048
     Dates: start: 20100215, end: 20100216
  2. PROZAC [Suspect]
     Indication: DEPRESSION
     Dosage: 20 MG, 1X/DAY:QD
     Route: 048
     Dates: start: 20040101
  3. MULTI-VITAMINS [Concomitant]
     Indication: SUPPLEMENTATION THERAPY
     Dosage: UNK, 1X/DAY:QD
     Route: 048
  4. ECHINACEA                          /01323501/ [Concomitant]
     Indication: SUPPLEMENTATION THERAPY
     Dosage: UNK, 1X/DAY:QD
     Route: 048
  5. INTUNIV [Suspect]
     Indication: ATTENTION DEFICIT/HYPERACTIVITY DISORDER
     Dosage: 1 MG, 1X/DAY:QD(INTUNIV TAKEN NIGHTLY)
     Route: 048
     Dates: start: 20100208, end: 20100214
  6. OMEGA-3 FATTY ACIDS [Concomitant]
     Indication: SUPPLEMENTATION THERAPY
     Dosage: UNK, 1X/DAY:QD
     Route: 048
  7. PROZAC [Suspect]
     Indication: ANXIETY

REACTIONS (4)
  - SOMNOLENCE [None]
  - DRUG INTERACTION [None]
  - DIZZINESS [None]
  - FEELING ABNORMAL [None]
